FAERS Safety Report 4948834-9 (Version None)
Quarter: 2006Q1

REPORT INFORMATION
  Report Type: 
  Country: None (occurrence: None)
  Receive Date: 20060321
  Receipt Date: 20060309
  Transmission Date: 20060701
  Serious: Yes (Hospitalization)
  Sender: FDA-Public Use
  Company Number: JP-JNJFOC-20060301927

PATIENT
  Sex: Female
  Weight: 30 kg

DRUGS (15)
  1. RISPERDAL [Suspect]
     Route: 048
  2. RISPERDAL [Suspect]
     Route: 048
  3. RISPERDAL [Suspect]
     Route: 048
  4. RISPERDAL [Suspect]
     Route: 048
  5. RISPERDAL [Suspect]
     Route: 048
  6. RISPERDAL [Suspect]
     Route: 048
  7. RISPERDAL [Suspect]
     Route: 048
  8. RISPERDAL [Suspect]
     Route: 048
  9. RISPERDAL [Suspect]
     Indication: AUTISM
     Route: 048
  10. VALPROATE SODIUM [Suspect]
     Route: 048
  11. VALPROATE SODIUM [Suspect]
     Route: 048
  12. VALPROATE SODIUM [Suspect]
     Route: 048
  13. VALPROATE SODIUM [Suspect]
     Route: 048
  14. BIPERIDEN HYDROCHLORIDE TAB [Suspect]
     Indication: DRUG USE FOR UNKNOWN INDICATION
     Route: 048
  15. BIPERIDEN AND PREPARATIONS [Concomitant]
     Dates: start: 20050314, end: 20050406

REACTIONS (3)
  - CONVULSION [None]
  - DIZZINESS [None]
  - SEROTONIN SYNDROME [None]
